FAERS Safety Report 22129710 (Version 1)
Quarter: 2023Q1

REPORT INFORMATION
  Report Type: Spontaneous
  Country: US (occurrence: US)
  Receive Date: 20230323
  Receipt Date: 20230323
  Transmission Date: 20230417
  Serious: No
  Sender: FDA-Public Use
  Company Number: US-BRISTOL-MYERS SQUIBB COMPANY-2023-034358

PATIENT
  Age: 82 Year
  Sex: Female

DRUGS (3)
  1. ELIQUIS [Interacting]
     Active Substance: APIXABAN
     Indication: Product used for unknown indication
  2. DIFLUCAN [Interacting]
     Active Substance: FLUCONAZOLE
     Indication: Onychomycosis
     Dosage: FREQUENCY : DIFLUCAN 200 MG ONCE A WEEK FOR 25 WEEEKS
  3. PRILOSEC [Concomitant]
     Active Substance: OMEPRAZOLE MAGNESIUM
     Indication: Product used for unknown indication

REACTIONS (2)
  - Labelled drug-drug interaction issue [Unknown]
  - Onychomycosis [Unknown]
